FAERS Safety Report 21379252 (Version 2)
Quarter: 2022Q3

REPORT INFORMATION
  Report Type: Report from Study
  Country: MX (occurrence: MX)
  Receive Date: 20220927
  Receipt Date: 20220927
  Transmission Date: 20221026
  Serious: Yes (Death)
  Sender: FDA-Public Use
  Company Number: MX-NOVARTISPH-NVSC2022MX217567

PATIENT
  Sex: Male
  Weight: 45 kg

DRUGS (1)
  1. EXELON [Suspect]
     Active Substance: RIVASTIGMINE TARTRATE
     Indication: Parkinson^s disease
     Dosage: 1 DOSAGE FORM, QD
     Route: 062
     Dates: start: 2021

REACTIONS (1)
  - Parkinson^s disease [Fatal]
